FAERS Safety Report 20817444 (Version 1)
Quarter: 2022Q2

REPORT INFORMATION
  Report Type: Spontaneous
  Country: US (occurrence: US)
  Receive Date: 20220512
  Receipt Date: 20220512
  Transmission Date: 20220721
  Serious: Yes (Hospitalization, Other)
  Sender: FDA-Public Use
  Company Number: US-SPC-000086

PATIENT
  Age: 83 Year
  Sex: Female

DRUGS (1)
  1. METRONIDAZOLE [Suspect]
     Active Substance: METRONIDAZOLE
     Indication: Clostridium difficile colitis
     Route: 048

REACTIONS (5)
  - Disease progression [Unknown]
  - Liver abscess [Unknown]
  - Nausea [Unknown]
  - Weight decreased [Unknown]
  - Product use in unapproved indication [Unknown]
